FAERS Safety Report 15799637 (Version 2)
Quarter: 2019Q1

REPORT INFORMATION
  Report Type: Report from Study
  Country: PK (occurrence: PK)
  Receive Date: 20190108
  Receipt Date: 20190128
  Transmission Date: 20190417
  Serious: Yes (Death)
  Sender: FDA-Public Use
  Company Number: PHHY2019PK002404

PATIENT
  Sex: Male
  Weight: 70 kg

DRUGS (1)
  1. GLIVEC [Suspect]
     Active Substance: IMATINIB MESYLATE
     Indication: CHRONIC MYELOID LEUKAEMIA
     Dosage: 3 DF (600 MG), BID
     Route: 048
     Dates: start: 20111203

REACTIONS (1)
  - Cardio-respiratory arrest [Fatal]
